FAERS Safety Report 20775006 (Version 1)
Quarter: 2022Q2

REPORT INFORMATION
  Report Type: Spontaneous
  Country: US (occurrence: None)
  Receive Date: 20220430
  Receipt Date: 20220430
  Transmission Date: 20220721
  Serious: Yes (Life-Threatening, Disabling, Other)
  Sender: FDA-Public Use
  Company Number: None

PATIENT
  Sex: Female
  Weight: 81.65 kg

DRUGS (4)
  1. MORPHINE SULFATE [Suspect]
     Active Substance: MORPHINE SULFATE
  2. DICLOFENAC [Concomitant]
     Active Substance: DICLOFENAC
  3. Coloidal silver 1100 ppm [Concomitant]
  4. Mujltivitamin one a day female 50+ [Concomitant]

REACTIONS (2)
  - Urinary incontinence [None]
  - Incorrect dose administered [None]

NARRATIVE: CASE EVENT DATE: 20180601
